FAERS Safety Report 5607119-8 (Version None)
Quarter: 2008Q1

REPORT INFORMATION
  Report Type: 
  Country: None (occurrence: None)
  Receive Date: 20080129
  Receipt Date: 20080123
  Transmission Date: 20080703
  Serious: Yes (Other)
  Sender: FDA-Public Use
  Company Number: PFIZER INC-2008007349

PATIENT
  Sex: Female

DRUGS (3)
  1. XANAX [Suspect]
     Indication: ANXIETY
  2. XANAX [Suspect]
     Indication: PSYCHOMOTOR HYPERACTIVITY
  3. XANAX [Suspect]
     Indication: MANIA

REACTIONS (2)
  - DRUG DEPENDENCE [None]
  - HYPERTENSION [None]
